FAERS Safety Report 8032386-3 (Version None)
Quarter: 2011Q4

REPORT INFORMATION
  Report Type: 
  Country: None (occurrence: None)
  Receive Date: 20111202
  Receipt Date: 20110601
  Transmission Date: 20120403
  Serious: Yes (Hospitalization, Other)
  Sender: FDA-Public Use
  Company Number: 2011SP025636

PATIENT
  Age: 32 Year
  Sex: Female
  Weight: 83.9154 kg

DRUGS (1)
  1. NUVARING [Suspect]
     Indication: ENDOMETRIOSIS
     Dates: start: 20090101, end: 20090601

REACTIONS (3)
  - GALLBLADDER DISORDER [None]
  - PAIN [None]
  - DEEP VEIN THROMBOSIS [None]
